FAERS Safety Report 7354647-3 (Version None)
Quarter: 2011Q1

REPORT INFORMATION
  Report Type: 
  Country: None (occurrence: None)
  Receive Date: 20110308
  Receipt Date: 20110224
  Transmission Date: 20110831
  Serious: Yes (Death)
  Sender: FDA-Public Use
  Company Number: JP-2011-10270

PATIENT
  Age: 82 Year
  Sex: Male

DRUGS (6)
  1. SOLDEM (MAINTENANCE MEDIUM) [Concomitant]
  2. ALBUMIN (HUMAN) [Concomitant]
  3. LASIX [Concomitant]
  4. ISOTONIC SODIUM CHLORIDE SOLUTION (ISOTONIC SODIUM CHLORIDE SOLUTION) [Concomitant]
  5. MEROPENEM [Concomitant]
  6. SAMSCA [Suspect]
     Indication: DIURETIC THERAPY
     Dosage: 15 MG MILLIGRAM(S), QD, ORAL
     Route: 048
     Dates: start: 20110208, end: 20110210

REACTIONS (11)
  - PLEURAL EFFUSION [None]
  - HYPOALBUMINAEMIA [None]
  - OLIGURIA [None]
  - ASCITES [None]
  - GENERALISED OEDEMA [None]
  - CARDIAC FAILURE CONGESTIVE [None]
  - ALTERED STATE OF CONSCIOUSNESS [None]
  - RESPIRATORY FAILURE [None]
  - HYPERCAPNIA [None]
  - HYPERNATRAEMIA [None]
  - RESPIRATORY ARREST [None]
